FAERS Safety Report 19454851 (Version 1)
Quarter: 2021Q2

REPORT INFORMATION
  Report Type: Spontaneous
  Country: US (occurrence: US)
  Receive Date: 20210623
  Receipt Date: 20210623
  Transmission Date: 20210717
  Serious: Yes (Other)
  Sender: FDA-Public Use
  Company Number: US-PFIZER INC-2021350759

PATIENT
  Age: 67 Year
  Sex: Female

DRUGS (1)
  1. RAPAMUNE [Suspect]
     Active Substance: SIROLIMUS
     Dosage: 1 MG (QTY OF 270 FOR A 90 DAYS^ SUPPLY)

REACTIONS (3)
  - Breast cancer [Unknown]
  - Fracture [Unknown]
  - Fall [Unknown]
